FAERS Safety Report 11358071 (Version 1)
Quarter: 2015Q3

REPORT INFORMATION
  Report Type: Spontaneous
  Country: US (occurrence: US)
  Receive Date: 20150803
  Receipt Date: 20150803
  Transmission Date: 20151125
  Serious: Yes (Other)
  Sender: FDA-Public Use
  Company Number: US-ELI_LILLY_AND_COMPANY-US200903002558

PATIENT
  Age: 15 Year
  Sex: Male

DRUGS (3)
  1. STRATTERA [Suspect]
     Active Substance: ATOMOXETINE HYDROCHLORIDE
     Indication: ATTENTION DEFICIT/HYPERACTIVITY DISORDER
     Dosage: 40 MG, UNKNOWN
     Route: 048
     Dates: start: 20090218, end: 20090225
  2. STRATTERA [Suspect]
     Active Substance: ATOMOXETINE HYDROCHLORIDE
     Dosage: 80 MG, UNKNOWN
     Route: 048
     Dates: start: 20090226, end: 20090304
  3. MINOCYCLINE [Concomitant]
     Active Substance: MINOCYCLINE\MINOCYCLINE HYDROCHLORIDE
     Indication: ACNE
     Dosage: 100 MG, DAILY (1/D)
     Route: 065
     Dates: start: 200807

REACTIONS (5)
  - Chest pain [Recovering/Resolving]
  - Throat irritation [Recovering/Resolving]
  - Gastrooesophageal reflux disease [Recovering/Resolving]
  - Palpitations [Recovering/Resolving]
  - Dysphagia [Recovering/Resolving]

NARRATIVE: CASE EVENT DATE: 200902
